FAERS Safety Report 7788557-4 (Version None)
Quarter: 2011Q3

REPORT INFORMATION
  Report Type: 
  Country: None (occurrence: None)
  Receive Date: 20110928
  Receipt Date: 20110912
  Transmission Date: 20111222
  Serious: Yes (Other)
  Sender: FDA-Public Use
  Company Number: GGEL20110901348

PATIENT
  Age: 34 Year
  Sex: Male

DRUGS (3)
  1. DULOXETINE (DULOXETINE)(DULOXETINE) [Concomitant]
  2. GABAPENTIN [Suspect]
     Indication: SOCIAL PHOBIA
     Dosage: 100 MILLIGRAM, EVERY NIGHT, 200 MILLIGRAM, EVERY NIGHT, 300 MILLIGRAM, EVERY NIGHT
  3. BUPROPION (BUPROPION)(BUPROPION) [Concomitant]

REACTIONS (5)
  - ERECTILE DYSFUNCTION [None]
  - ANORGASMIA [None]
  - EJACULATION DELAYED [None]
  - OFF LABEL USE [None]
  - LIBIDO DECREASED [None]
